FAERS Safety Report 19042821 (Version 7)
Quarter: 2022Q1

REPORT INFORMATION
  Report Type: Report from Study
  Country: JP (occurrence: JP)
  Receive Date: 20210323
  Receipt Date: 20220324
  Transmission Date: 20220423
  Serious: Yes (Life-Threatening, Hospitalization, Other)
  Sender: FDA-Public Use
  Company Number: JP-JNJFOC-A-CH2018-183791

PATIENT
  Age: 4 Month
  Sex: Male
  Weight: 5.38 kg

DRUGS (48)
  1. OPSUMIT [Suspect]
     Active Substance: MACITENTAN
     Indication: Pulmonary arterial hypertension
     Dosage: 0.5 MG, BID
     Route: 048
     Dates: start: 20180523, end: 20190408
  2. OPSUMIT [Suspect]
     Active Substance: MACITENTAN
     Dosage: 0.7 MG, BID
     Route: 048
     Dates: start: 20190409
  3. EPOPROSTENOL [Suspect]
     Active Substance: EPOPROSTENOL
     Indication: Pulmonary arterial hypertension
     Dosage: 2 NG/KG, PER MIN
     Route: 042
     Dates: start: 20180523, end: 20180524
  4. EPOPROSTENOL [Suspect]
     Active Substance: EPOPROSTENOL
     Dosage: 4-20 NG/KG/MIN
     Route: 042
     Dates: start: 20180524, end: 20180604
  5. EPOPROSTENOL [Suspect]
     Active Substance: EPOPROSTENOL
     Dosage: 48-50NG/KG/MIN
     Route: 042
     Dates: start: 20180604, end: 20180626
  6. EPOPROSTENOL [Suspect]
     Active Substance: EPOPROSTENOL
     Dosage: 46 NG/KG, PER MIN
     Route: 042
     Dates: start: 20180627, end: 20180628
  7. EPOPROSTENOL [Suspect]
     Active Substance: EPOPROSTENOL
     Dosage: 1- 44 NG/KG, PER MIN
     Route: 042
     Dates: start: 20180629, end: 20180927
  8. REVATIO [Suspect]
     Active Substance: SILDENAFIL CITRATE
     Indication: Pulmonary arterial hypertension
     Dosage: 0.45-3.6 MG, QD
     Route: 048
     Dates: start: 20180524, end: 20180813
  9. REVATIO [Suspect]
     Active Substance: SILDENAFIL CITRATE
     Dosage: 21.6 MG, QD
     Route: 048
     Dates: end: 20180808
  10. REVATIO [Suspect]
     Active Substance: SILDENAFIL CITRATE
     Dosage: 11.2 MG, QD
     Route: 048
     Dates: start: 20180808, end: 20180813
  11. NITRIC OXIDE [Concomitant]
     Active Substance: NITRIC OXIDE
     Dosage: UNK
     Route: 055
     Dates: end: 20180625
  12. UPTRAVI [Concomitant]
     Active Substance: SELEXIPAG
     Route: 048
     Dates: start: 20180621, end: 20180625
  13. UPTRAVI [Concomitant]
     Active Substance: SELEXIPAG
     Route: 048
     Dates: start: 20180626, end: 20180630
  14. UPTRAVI [Concomitant]
     Active Substance: SELEXIPAG
     Route: 048
     Dates: start: 20180701, end: 20180705
  15. UPTRAVI [Concomitant]
     Active Substance: SELEXIPAG
     Route: 048
     Dates: start: 20180706, end: 20180710
  16. UPTRAVI [Concomitant]
     Active Substance: SELEXIPAG
     Route: 048
     Dates: start: 20180711, end: 20180715
  17. UPTRAVI [Concomitant]
     Active Substance: SELEXIPAG
     Route: 048
     Dates: start: 20180716, end: 20180720
  18. UPTRAVI [Concomitant]
     Active Substance: SELEXIPAG
     Route: 048
     Dates: start: 20180721, end: 20180725
  19. UPTRAVI [Concomitant]
     Active Substance: SELEXIPAG
     Route: 048
     Dates: start: 20180726, end: 20180913
  20. UPTRAVI [Concomitant]
     Active Substance: SELEXIPAG
     Route: 048
     Dates: start: 20180914, end: 20180918
  21. UPTRAVI [Concomitant]
     Active Substance: SELEXIPAG
     Route: 048
     Dates: start: 20180919, end: 20190310
  22. UPTRAVI [Concomitant]
     Active Substance: SELEXIPAG
     Route: 048
     Dates: start: 20190311, end: 20190315
  23. UPTRAVI [Concomitant]
     Active Substance: SELEXIPAG
     Route: 048
     Dates: start: 20190316, end: 20190330
  24. UPTRAVI [Concomitant]
     Active Substance: SELEXIPAG
     Route: 048
     Dates: start: 20190331
  25. ADCIRCA [Concomitant]
     Active Substance: TADALAFIL
     Indication: Pulmonary arterial hypertension
     Dosage: 8 MG, QD
     Route: 048
     Dates: start: 20180810, end: 20190324
  26. ADCIRCA [Concomitant]
     Active Substance: TADALAFIL
     Dosage: 2.5 MG, QD
     Route: 048
     Dates: start: 20180806, end: 20180810
  27. ADCIRCA [Concomitant]
     Active Substance: TADALAFIL
     Route: 048
     Dates: start: 20190325
  28. FUROSEMIDE [Concomitant]
     Active Substance: FUROSEMIDE
     Indication: Cardiac failure
     Dosage: 15 MG, QD
     Dates: start: 20180701, end: 20180802
  29. FUROSEMIDE [Concomitant]
     Active Substance: FUROSEMIDE
     Dosage: 22 MG, QD
     Dates: start: 20180802, end: 20181004
  30. FUROSEMIDE [Concomitant]
     Active Substance: FUROSEMIDE
     Dosage: 21 MG, QD
     Dates: start: 20181005, end: 20181018
  31. FUROSEMIDE [Concomitant]
     Active Substance: FUROSEMIDE
     Dosage: 18 MG, QD
     Dates: start: 20181019, end: 20181216
  32. FUROSEMIDE [Concomitant]
     Active Substance: FUROSEMIDE
     Dosage: 15 MG, QD
     Dates: start: 20181217
  33. FUROSEMIDE [Concomitant]
     Active Substance: FUROSEMIDE
     Dosage: 2MGX3-6TIMES/DAY
     Route: 042
     Dates: start: 20180604, end: 20180613
  34. FUROSEMIDE [Concomitant]
     Active Substance: FUROSEMIDE
     Dosage: UNK
     Dates: start: 20180604, end: 20180805
  35. FUROSEMIDE [Concomitant]
     Active Substance: FUROSEMIDE
     Dosage: 3 MG, QD
     Dates: start: 20180704, end: 20180706
  36. FUROSEMIDE [Concomitant]
     Active Substance: FUROSEMIDE
     Dosage: 1-2MGX3-6TIMES/DAY
     Route: 042
     Dates: start: 20180704, end: 20180805
  37. FUROSEMIDE [Concomitant]
     Active Substance: FUROSEMIDE
     Dosage: 2-7.3MGX3TIMES/DAY
     Dates: start: 20180517
  38. FUROSEMIDE [Concomitant]
     Active Substance: FUROSEMIDE
     Dosage: 0.215MG/HR
     Route: 042
     Dates: start: 20180613, end: 20180701
  39. SPIRONOLACTONE [Concomitant]
     Active Substance: SPIRONOLACTONE
     Indication: Cardiac failure
     Dosage: 15 MG, QD
     Dates: start: 20180701, end: 20180802
  40. SPIRONOLACTONE [Concomitant]
     Active Substance: SPIRONOLACTONE
     Dosage: 22 MG, QD
     Dates: start: 20180802, end: 20181004
  41. SPIRONOLACTONE [Concomitant]
     Active Substance: SPIRONOLACTONE
     Dosage: 21 MG, QD
     Dates: start: 20181005, end: 20181018
  42. SPIRONOLACTONE [Concomitant]
     Active Substance: SPIRONOLACTONE
     Dosage: 18 MG, QD
     Dates: start: 20181019, end: 20181216
  43. SPIRONOLACTONE [Concomitant]
     Active Substance: SPIRONOLACTONE
     Dosage: 15 MG, QD
     Dates: start: 20181217
  44. SPIRONOLACTONE [Concomitant]
     Active Substance: SPIRONOLACTONE
     Dosage: 2-7.3MGX3TIMES/DAY
     Route: 048
     Dates: start: 20180517
  45. TOLVAPTAN [Concomitant]
     Active Substance: TOLVAPTAN
     Indication: Cardiac failure
     Dosage: 0.5-0.75MGX2-3TIMES/DAY
     Route: 048
     Dates: start: 20180701
  46. HYDROCHLOROTHIAZIDE [Concomitant]
     Active Substance: HYDROCHLOROTHIAZIDE
     Indication: Cardiac failure
     Dosage: 1.5-7.5MGX2TIMES/DAY
     Dates: start: 20180801, end: 20181115
  47. WARFARIN [Concomitant]
     Active Substance: WARFARIN
     Indication: Thrombosis prophylaxis
     Dosage: 0.15-0.3MGX2TIMES/DAY
     Route: 048
     Dates: start: 20180614
  48. OXYGEN [Concomitant]
     Active Substance: OXYGEN
     Route: 055

REACTIONS (15)
  - Oxygen saturation decreased [Recovering/Resolving]
  - Anaemia [Recovering/Resolving]
  - Pleural effusion [Recovering/Resolving]
  - Blood pressure decreased [Recovering/Resolving]
  - Pulmonary congestion [Recovering/Resolving]
  - Condition aggravated [Recovering/Resolving]
  - Transfusion [Unknown]
  - Thoracic cavity drainage [Unknown]
  - Respiratory failure [Recovered/Resolved]
  - Dyspnoea [Recovering/Resolving]
  - Pyrexia [Recovered/Resolved]
  - White blood cell count increased [Recovered/Resolved]
  - Device related infection [Recovered/Resolved]
  - Platelet count decreased [Recovered/Resolved]
  - Off label use [Unknown]

NARRATIVE: CASE EVENT DATE: 20180524
